FAERS Safety Report 10569882 (Version 2)
Quarter: 2024Q4

REPORT INFORMATION
  Report Type: Spontaneous
  Country: HU (occurrence: HU)
  Receive Date: 20141107
  Receipt Date: 20241016
  Transmission Date: 20250114
  Serious: Yes (Other)
  Sender: ROCHE
  Company Number: HU-ROCHE-1484239

PATIENT
  Age: 70 Year
  Sex: Female

DRUGS (5)
  1. IBANDRONIC ACID [Suspect]
     Active Substance: IBANDRONIC ACID
     Indication: Breast cancer metastatic
     Route: 065
     Dates: start: 200701, end: 201210
  2. BEVACIZUMAB [Suspect]
     Active Substance: BEVACIZUMAB
     Indication: Breast cancer metastatic
     Route: 065
     Dates: start: 201109, end: 201204
  3. CAPECITABINE [Suspect]
     Active Substance: CAPECITABINE
     Indication: Breast cancer metastatic
     Route: 065
     Dates: start: 201204, end: 201210
  4. PACLITAXEL [Suspect]
     Active Substance: PACLITAXEL
     Indication: Breast cancer metastatic
     Route: 065
     Dates: start: 201109, end: 201204
  5. EXEMESTANE [Concomitant]
     Active Substance: EXEMESTANE
     Route: 065

REACTIONS (5)
  - Osteomyelitis [Unknown]
  - Polyneuropathy [Unknown]
  - Renal impairment [Unknown]
  - Metastases to lung [Unknown]
  - Drug ineffective [Unknown]

NARRATIVE: CASE EVENT DATE: 20120401
